FAERS Safety Report 6537343-1 (Version None)
Quarter: 2010Q1

REPORT INFORMATION
  Report Type: 
  Country: None (occurrence: None)
  Receive Date: 20100114
  Receipt Date: 20100108
  Transmission Date: 20100710
  Serious: Yes (Hospitalization)
  Sender: FDA-Public Use
  Company Number: JP-BRISTOL-MYERS SQUIBB COMPANY-14838965

PATIENT
  Age: 75 Year
  Sex: Male
  Weight: 71 kg

DRUGS (5)
  1. ERBITUX [Suspect]
     Indication: COLON CANCER
     Dosage: 640 MG:25SEP-25SE09, 02OCT209 TO 15OCT09:450 MG (1 IN 1WK).(13D)
     Route: 042
     Dates: start: 20090925, end: 20091015
  2. IRINOTECAN HCL [Suspect]
     Indication: COLON CANCER
     Dosage: MOST RECENT INFUSION ON 09-OCT-2009
     Route: 042
     Dates: start: 20091002, end: 20091002
  3. ANTIHISTAMINE DRUGS [Concomitant]
     Indication: PREMEDICATION
     Route: 048
     Dates: start: 20090925, end: 20091015
  4. DECADRON [Concomitant]
     Indication: PREMEDICATION
     Route: 042
     Dates: start: 20090925, end: 20091015
  5. KYTRIL [Concomitant]
     Indication: ANTIEMETIC SUPPORTIVE CARE
     Route: 042
     Dates: start: 20090915

REACTIONS (2)
  - DIARRHOEA [None]
  - HAEMATOCHEZIA [None]
